FAERS Safety Report 9731468 (Version 1)
Quarter: 2013Q4

REPORT INFORMATION
  Report Type: Spontaneous
  Country: US (occurrence: None)
  Receive Date: 20131204
  Receipt Date: 20131204
  Transmission Date: 20140711
  Serious: Yes (Other)
  Sender: FDA-Public Use
  Company Number: None

PATIENT
  Age: 58 Year
  Sex: Male
  Weight: 90.72 kg

DRUGS (1)
  1. LABETALOL [Suspect]
     Indication: HYPERTENSION
     Route: 048
     Dates: start: 20131111, end: 20131120

REACTIONS (3)
  - Supraventricular extrasystoles [None]
  - Product substitution issue [None]
  - Blood pressure increased [None]
